FAERS Safety Report 6648671-3 (Version None)
Quarter: 2010Q1

REPORT INFORMATION
  Report Type: 
  Country: None (occurrence: None)
  Receive Date: 20100324
  Receipt Date: 20100316
  Transmission Date: 20100710
  Serious: Yes (Other)
  Sender: FDA-Public Use
  Company Number: US-SANOFI-AVENTIS-2010SA016420

PATIENT
  Age: 72 Year
  Sex: Male

DRUGS (7)
  1. PLAVIX [Suspect]
     Indication: STENT PLACEMENT
     Route: 048
     Dates: start: 20090501
  2. RANOLAZINE [Concomitant]
  3. NEBIVOLOL HCL [Concomitant]
  4. MULTI-VITAMINS [Concomitant]
  5. IRON [Concomitant]
  6. AMLODIPINE BESYLATE [Concomitant]
  7. LIPITOR [Concomitant]

REACTIONS (1)
  - VASCULAR OCCLUSION [None]
